FAERS Safety Report 8842209 (Version 1)
Quarter: 2012Q4

REPORT INFORMATION
  Report Type: Spontaneous
  Country: US (occurrence: None)
  Receive Date: 20121015
  Receipt Date: 20121015
  Transmission Date: 20130627
  Serious: No
  Sender: FDA-Public Use
  Company Number: None

PATIENT
  Age: 64 Year
  Sex: Male
  Weight: 108.5 kg

DRUGS (2)
  1. DABIGATRAN [Suspect]
     Indication: ATRIAL FIBRILLATION
     Route: 048
     Dates: start: 20120818, end: 20120818
  2. ASPIRIN [Suspect]
     Route: 048
     Dates: start: 20120818, end: 20120818

REACTIONS (5)
  - Confusional state [None]
  - Haemorrhage [None]
  - Anaemia [None]
  - Gastric haemorrhage [None]
  - Hypotension [None]
